FAERS Safety Report 24551124 (Version 3)
Quarter: 2025Q3

REPORT INFORMATION
  Report Type: Report from Study
  Country: EU (occurrence: EU)
  Receive Date: 20241025
  Receipt Date: 20250813
  Transmission Date: 20251020
  Serious: Yes (Hospitalization)
  Sender: PFIZER
  Company Number: EU-PFIZER INC-PV202400073061

PATIENT
  Age: 66 Year
  Sex: Female
  Weight: 59 kg

DRUGS (3)
  1. TUCATINIB [Suspect]
     Active Substance: TUCATINIB
     Indication: HER2 positive breast cancer
     Dosage: 600 MG, DAILY
     Route: 048
     Dates: start: 20240418, end: 20240531
  2. IBUPROFEN [Concomitant]
     Active Substance: IBUPROFEN
     Indication: Skin mass
     Route: 048
     Dates: start: 20230928
  3. IBUPROFEN [Concomitant]
     Active Substance: IBUPROFEN
     Indication: Pain

REACTIONS (1)
  - Dyspnoea [Recovered/Resolved]

NARRATIVE: CASE EVENT DATE: 20240529
